FAERS Safety Report 6223858-2 (Version None)
Quarter: 2009Q2

REPORT INFORMATION
  Report Type: 
  Country: None (occurrence: None)
  Receive Date: 20090611
  Receipt Date: 20090302
  Transmission Date: 20091009
  Serious: No
  Sender: FDA-Public Use
  Company Number: US-ABBOTT-09P-163-0560296-00

PATIENT
  Sex: Female
  Weight: 64.468 kg

DRUGS (5)
  1. HUMIRA [Suspect]
     Indication: RHEUMATOID ARTHRITIS
     Route: 058
     Dates: start: 20090211
  2. CYMBALTA [Concomitant]
     Indication: ANXIETY
     Route: 048
  3. ALLEGRA D 24 HOUR [Concomitant]
     Indication: SEASONAL ALLERGY
     Dosage: 12 HOUR FORMULATION
     Route: 048
  4. SINGULAIR [Concomitant]
     Indication: SEASONAL ALLERGY
     Route: 048
  5. ZEGERID [Concomitant]
     Indication: DYSPEPSIA
     Route: 048

REACTIONS (1)
  - DRUG INEFFECTIVE [None]
